FAERS Safety Report 5374835-5 (Version None)
Quarter: 2007Q2

REPORT INFORMATION
  Report Type: 
  Country: None (occurrence: None)
  Receive Date: 20070629
  Receipt Date: 20070622
  Transmission Date: 20071010
  Serious: Yes (Other)
  Sender: FDA-Public Use
  Company Number: B0436959A

PATIENT
  Age: 21 Year
  Sex: Female
  Weight: 68 kg

DRUGS (3)
  1. LAMICTAL [Suspect]
     Route: 048
     Dates: end: 20060830
  2. LAMICTAL [Suspect]
     Indication: EPILEPSY
     Dosage: 2000MG PER DAY
     Dates: start: 20050704
  3. CONVULEX [Concomitant]
     Indication: EPILEPSY
     Dosage: 2000MG TWICE PER DAY
     Route: 048
     Dates: start: 20050704

REACTIONS (3)
  - ABORTION SPONTANEOUS [None]
  - DRUG EXPOSURE DURING PREGNANCY [None]
  - STILLBIRTH [None]
